FAERS Safety Report 13290811 (Version 21)
Quarter: 2022Q1

REPORT INFORMATION
  Report Type: Spontaneous
  Country: FR (occurrence: FR)
  Receive Date: 20170302
  Receipt Date: 20220217
  Transmission Date: 20220423
  Serious: Yes (Death, Hospitalization, Other)
  Sender: FDA-Public Use
  Company Number: FR-009507513-1702FRA011730

PATIENT
  Age: 71 Year
  Sex: Male
  Weight: 113.4 kg

DRUGS (83)
  1. CUBICIN [Suspect]
     Active Substance: DAPTOMYCIN
     Indication: Product used for unknown indication
     Dosage: 800 MG, QD
     Route: 042
     Dates: start: 20170110, end: 20170201
  2. CUBICIN [Suspect]
     Active Substance: DAPTOMYCIN
     Indication: Chest scan
     Dosage: 800 MG, QD
     Route: 042
     Dates: start: 20170110
  3. CUBICIN [Suspect]
     Active Substance: DAPTOMYCIN
     Indication: Skin infection
     Dosage: 800 MG, QD
     Route: 042
  4. CUBICIN [Suspect]
     Active Substance: DAPTOMYCIN
     Dosage: 800 MG, QD
     Route: 042
  5. DAPTOMYCIN [Suspect]
     Active Substance: DAPTOMYCIN
     Indication: Chest scan
     Dosage: 800 MG, 1X/DAY
     Route: 042
     Dates: start: 20170110
  6. DAPTOMYCIN [Suspect]
     Active Substance: DAPTOMYCIN
     Indication: Skin infection
     Dosage: 800 MG, 1X/DAY
     Route: 042
     Dates: start: 20170110, end: 20170201
  7. PANTOPRAZOLE [Suspect]
     Active Substance: PANTOPRAZOLE
     Indication: Product used for unknown indication
     Dosage: UNK
     Route: 042
     Dates: start: 20161225, end: 20170119
  8. PANTOPRAZOLE [Suspect]
     Active Substance: PANTOPRAZOLE
     Indication: Chest scan
     Dosage: UNK
     Route: 042
     Dates: start: 20161225, end: 20170119
  9. PANTOPRAZOLE [Suspect]
     Active Substance: PANTOPRAZOLE
     Indication: Skin infection
  10. METOCLOPRAMIDE HYDROCHLORIDE [Suspect]
     Active Substance: METOCLOPRAMIDE HYDROCHLORIDE
     Indication: Product used for unknown indication
     Dosage: 30 MG, QD
     Route: 048
  11. METOCLOPRAMIDE HYDROCHLORIDE [Suspect]
     Active Substance: METOCLOPRAMIDE HYDROCHLORIDE
     Indication: Skin infection
     Dosage: 30 MG, QD
     Route: 048
  12. METOCLOPRAMIDE HYDROCHLORIDE [Suspect]
     Active Substance: METOCLOPRAMIDE HYDROCHLORIDE
     Indication: Chest scan
  13. QUESTRAN [Suspect]
     Active Substance: CHOLESTYRAMINE
     Indication: Product used for unknown indication
     Dosage: 4 G, QD
     Route: 048
     Dates: start: 20161216, end: 20170119
  14. QUESTRAN [Suspect]
     Active Substance: CHOLESTYRAMINE
     Indication: Product used for unknown indication
     Dosage: 1 DF, QD
     Route: 048
     Dates: start: 20161216, end: 20170119
  15. QUESTRAN [Suspect]
     Active Substance: CHOLESTYRAMINE
     Indication: Skin infection
     Dosage: 4 G, 1X/DAY
     Route: 048
     Dates: start: 20161216, end: 20170119
  16. QUESTRAN [Suspect]
     Active Substance: CHOLESTYRAMINE
     Indication: Chest scan
     Dosage: 4 G, QD
     Route: 048
     Dates: start: 20161216, end: 20170119
  17. ULTRAVIST [Suspect]
     Active Substance: IOPROMIDE
     Indication: Chest scan
     Dosage: 370 MG, UNK
     Route: 042
     Dates: start: 20170116, end: 20170116
  18. ULTRAVIST [Suspect]
     Active Substance: IOPROMIDE
     Indication: Skin infection
     Dosage: UNK
  19. ULTRAVIST [Suspect]
     Active Substance: IOPROMIDE
     Dosage: 370 MG, UNK
     Route: 042
     Dates: end: 20170116
  20. ULTRAVIST [Suspect]
     Active Substance: IOPROMIDE
     Dosage: 370 MG, UNK
     Route: 042
     Dates: start: 20170116, end: 20170116
  21. SYMBICORT [Suspect]
     Active Substance: BUDESONIDE\FORMOTEROL FUMARATE DIHYDRATE
     Indication: Product used for unknown indication
     Dosage: 400/12 1 INHALATION PER DAY
     Route: 055
     Dates: start: 20161220, end: 20170119
  22. RIFADIN [Suspect]
     Active Substance: RIFAMPIN
     Indication: Product used for unknown indication
     Dosage: UNK
     Route: 065
  23. RIFADIN [Suspect]
     Active Substance: RIFAMPIN
     Indication: Chest scan
     Dosage: UNK
     Route: 065
  24. RIFADIN [Suspect]
     Active Substance: RIFAMPIN
     Indication: Skin infection
     Dosage: UNK
  25. RIFADIN [Suspect]
     Active Substance: RIFAMPIN
     Dosage: UNK
     Route: 065
  26. RIFAMPIN [Suspect]
     Active Substance: RIFAMPIN
     Indication: Product used for unknown indication
     Route: 065
  27. RIFAMPIN [Suspect]
     Active Substance: RIFAMPIN
     Indication: Chest scan
  28. RIFAMPIN [Suspect]
     Active Substance: RIFAMPIN
     Indication: Skin infection
  29. NEFOPAM [Suspect]
     Active Substance: NEFOPAM
     Indication: Product used for unknown indication
     Dosage: UNK
     Route: 042
     Dates: start: 20161202, end: 20170119
  30. NEFOPAM [Suspect]
     Active Substance: NEFOPAM
     Indication: Chest scan
     Dosage: UNK
     Route: 042
     Dates: start: 20161202, end: 20170119
  31. NEFOPAM [Suspect]
     Active Substance: NEFOPAM
     Indication: Skin infection
  32. LINEZOLID [Suspect]
     Active Substance: LINEZOLID
     Indication: Skin infection
     Dosage: 600 MG, BID
     Route: 048
     Dates: start: 20161222, end: 20170110
  33. LINEZOLID [Suspect]
     Active Substance: LINEZOLID
     Indication: Chest scan
     Dosage: 600 MG, BID
     Route: 048
     Dates: start: 20161222, end: 20170110
  34. ACETAMINOPHEN\TRAMADOL HYDROCHLORIDE [Suspect]
     Active Substance: ACETAMINOPHEN\TRAMADOL HYDROCHLORIDE
     Indication: Product used for unknown indication
     Dosage: 8 DF, QD (2 TABLETS, FOUR TIMES A DAY)
     Route: 048
     Dates: start: 20161201, end: 20170119
  35. ACETAMINOPHEN\TRAMADOL HYDROCHLORIDE [Suspect]
     Active Substance: ACETAMINOPHEN\TRAMADOL HYDROCHLORIDE
     Indication: Chest scan
     Dosage: 8 DF, 1X/DAY
     Dates: start: 20161201, end: 20170119
  36. ACETAMINOPHEN\TRAMADOL HYDROCHLORIDE [Suspect]
     Active Substance: ACETAMINOPHEN\TRAMADOL HYDROCHLORIDE
     Indication: Skin infection
  37. RACECADOTRIL [Suspect]
     Active Substance: RACECADOTRIL
     Indication: Product used for unknown indication
     Dosage: 1 DF, TID
     Route: 048
     Dates: start: 20161209, end: 20170119
  38. RACECADOTRIL [Suspect]
     Active Substance: RACECADOTRIL
     Indication: Chest scan
     Dosage: 100 MG, TID (1 DF)
     Route: 048
     Dates: start: 20161209, end: 20170119
  39. RACECADOTRIL [Suspect]
     Active Substance: RACECADOTRIL
     Indication: Skin infection
  40. PRIMPERAN [Suspect]
     Active Substance: METOCLOPRAMIDE HYDROCHLORIDE
     Indication: Product used for unknown indication
     Dosage: 3 DF, TID ( 1 DF TID)
     Route: 048
     Dates: start: 20161224, end: 20170119
  41. PRIMPERAN [Suspect]
     Active Substance: METOCLOPRAMIDE HYDROCHLORIDE
     Indication: Skin infection
     Dosage: 10 MG, TID (3 DF, TID (1 DF TID))
     Route: 048
     Dates: start: 20161224, end: 20170119
  42. PRIMPERAN [Suspect]
     Active Substance: METOCLOPRAMIDE HYDROCHLORIDE
     Indication: Chest scan
     Dosage: UNK
  43. PIPERACILLIN SODIUM\TAZOBACTAM SODIUM [Suspect]
     Active Substance: PIPERACILLIN SODIUM\TAZOBACTAM SODIUM
     Indication: Skin infection
     Dosage: 3 DF, QD (1 DF, TID)
     Route: 042
     Dates: start: 20161204, end: 20170130
  44. PIPERACILLIN SODIUM\TAZOBACTAM SODIUM [Suspect]
     Active Substance: PIPERACILLIN SODIUM\TAZOBACTAM SODIUM
     Indication: Chest scan
  45. VANCOMYCIN HYDROCHLORIDE [Suspect]
     Active Substance: VANCOMYCIN HYDROCHLORIDE
     Indication: Product used for unknown indication
     Dosage: UNK
     Route: 065
  46. VANCOMYCIN HYDROCHLORIDE [Suspect]
     Active Substance: VANCOMYCIN HYDROCHLORIDE
     Indication: Chest scan
     Dosage: UNK
     Route: 065
  47. VANCOMYCIN HYDROCHLORIDE [Suspect]
     Active Substance: VANCOMYCIN HYDROCHLORIDE
     Indication: Skin infection
     Dosage: UNK
     Route: 065
  48. BUDESONIDE [Suspect]
     Active Substance: BUDESONIDE
     Indication: Product used for unknown indication
     Dosage: 1 DF, QD
     Route: 055
     Dates: start: 20161220, end: 20170119
  49. CHOLESTYRAMINE [Suspect]
     Active Substance: CHOLESTYRAMINE
     Indication: Chest scan
     Dosage: UNK
  50. CHOLESTYRAMINE [Suspect]
     Active Substance: CHOLESTYRAMINE
     Indication: Skin infection
  51. LANTUS [Concomitant]
     Active Substance: INSULIN GLARGINE
     Indication: Product used for unknown indication
     Dosage: UNK
     Route: 065
  52. LANTUS [Concomitant]
     Active Substance: INSULIN GLARGINE
     Dosage: UNK
     Route: 065
  53. LANTUS [Concomitant]
     Active Substance: INSULIN GLARGINE
     Dosage: UNK
  54. LANTUS [Concomitant]
     Active Substance: INSULIN GLARGINE
     Dosage: UNK
  55. POTASSIUM CHLORIDE [Concomitant]
     Active Substance: POTASSIUM CHLORIDE
     Indication: Product used for unknown indication
     Dosage: UNK
     Route: 065
  56. POTASSIUM CHLORIDE [Concomitant]
     Active Substance: POTASSIUM CHLORIDE
     Route: 065
  57. POTASSIUM CHLORIDE [Concomitant]
     Active Substance: POTASSIUM CHLORIDE
  58. POTASSIUM CHLORIDE [Concomitant]
     Active Substance: POTASSIUM CHLORIDE
     Dosage: UNK
     Route: 065
  59. INSULIN HUMAN [Concomitant]
     Active Substance: INSULIN HUMAN
     Indication: Product used for unknown indication
     Dosage: UNK
     Route: 065
  60. INSULIN HUMAN [Concomitant]
     Active Substance: INSULIN HUMAN
     Route: 065
  61. INSULIN HUMAN [Concomitant]
     Active Substance: INSULIN HUMAN
  62. INSULIN HUMAN [Concomitant]
     Active Substance: INSULIN HUMAN
     Dosage: UNK
  63. FUROSEMIDE [Concomitant]
     Active Substance: FUROSEMIDE
     Indication: Product used for unknown indication
     Dosage: UNK
     Route: 065
  64. FUROSEMIDE [Concomitant]
     Active Substance: FUROSEMIDE
     Route: 065
  65. FUROSEMIDE [Concomitant]
     Active Substance: FUROSEMIDE
     Route: 065
  66. FUROSEMIDE [Concomitant]
     Active Substance: FUROSEMIDE
     Dosage: UNK
  67. KARDEGIC [Concomitant]
     Active Substance: ASPIRIN DL-LYSINE
     Indication: Product used for unknown indication
     Dosage: UNK
     Route: 065
  68. KARDEGIC [Concomitant]
     Active Substance: ASPIRIN DL-LYSINE
     Indication: Product used for unknown indication
     Dosage: UNK
     Route: 065
  69. KARDEGIC [Concomitant]
     Active Substance: ASPIRIN DL-LYSINE
     Dosage: UNK
     Route: 065
  70. POLARAMINE [Concomitant]
     Active Substance: DEXCHLORPHENIRAMINE MALEATE
     Indication: Product used for unknown indication
     Dosage: UNK
     Route: 065
  71. LOVENOX [Concomitant]
     Active Substance: ENOXAPARIN SODIUM
     Indication: Product used for unknown indication
     Dosage: UNK
     Route: 065
     Dates: start: 20170114
  72. LOPERAMIDE [Concomitant]
     Active Substance: LOPERAMIDE
     Indication: Product used for unknown indication
     Dosage: UNK
     Route: 065
  73. LOPERAMIDE [Concomitant]
     Active Substance: LOPERAMIDE
     Route: 065
  74. LOPERAMIDE [Concomitant]
     Active Substance: LOPERAMIDE
     Route: 065
  75. LOPERAMIDE [Concomitant]
     Active Substance: LOPERAMIDE
     Dosage: UNK
     Route: 065
  76. DUPHALAC [Concomitant]
     Active Substance: LACTULOSE
     Indication: Product used for unknown indication
     Dosage: UNK
     Route: 065
  77. DUPHALAC [Concomitant]
     Active Substance: LACTULOSE
     Dosage: UNK
     Route: 065
  78. DUPHALAC [Concomitant]
     Active Substance: LACTULOSE
     Dosage: UNK
  79. DUPHALAC [Concomitant]
     Active Substance: LACTULOSE
     Dosage: UNK
  80. INSULIN HUMAN [Concomitant]
     Active Substance: INSULIN HUMAN
     Dosage: UNK
  81. POTASSIUM CHLORIDE [Concomitant]
     Active Substance: POTASSIUM CHLORIDE
     Dosage: UNK
  82. POLARAMINE [Concomitant]
     Active Substance: DEXCHLORPHENIRAMINE MALEATE
     Dosage: UNK
     Route: 065
  83. LEVOFLOXACIN [Concomitant]
     Active Substance: LEVOFLOXACIN
     Dosage: UNK

REACTIONS (18)
  - Eosinophilic pneumonia [Fatal]
  - Hepatic encephalopathy [Fatal]
  - Dyspnoea [Fatal]
  - Rectal haemorrhage [Fatal]
  - Acute kidney injury [Fatal]
  - Eczema [Fatal]
  - Hyperammonaemia [Fatal]
  - Alveolar lung disease [Fatal]
  - Pulmonary interstitial emphysema syndrome [Fatal]
  - Glomerular filtration rate decreased [Fatal]
  - Restlessness [Fatal]
  - Diffuse alveolar damage [Fatal]
  - Sepsis [Fatal]
  - Eosinophilia [Fatal]
  - Death [Fatal]
  - Thrombocytopenia [Fatal]
  - Generalised oedema [Fatal]
  - Rash maculo-papular [Fatal]

NARRATIVE: CASE EVENT DATE: 20161227
